FAERS Safety Report 17105375 (Version 2)
Quarter: 2019Q4

REPORT INFORMATION
  Report Type: Spontaneous
  Country: DE (occurrence: DE)
  Receive Date: 20191203
  Receipt Date: 20191206
  Transmission Date: 20200122
  Serious: Yes (Hospitalization)
  Sender: FDA-Public Use
  Company Number: DE-MYLANLABS-2019M1116778

PATIENT
  Age: 59 Year
  Sex: Male

DRUGS (18)
  1. LACTULOSE. [Concomitant]
     Active Substance: LACTULOSE
     Dosage: UNK, BID
  2. NOVORAPID [Concomitant]
     Active Substance: INSULIN ASPART
     Dosage: NK IE, NACH SCHEMA
  3. SIMVASTATIN. [Concomitant]
     Active Substance: SIMVASTATIN
     Dosage: 40 MILLIGRAM, 0-0-1-0
  4. SULTANOL [Concomitant]
     Active Substance: ALBUTEROL SULFATE
     Dosage: NK MG, 5-5-5-5
     Route: 055
  5. ASPIRIN. [Concomitant]
     Active Substance: ASPIRIN
     Dosage: 100 MILLIGRAM, 0-1-0-0
  6. METOPROLOL. [Suspect]
     Active Substance: METOPROLOL
     Indication: PRODUCT USED FOR UNKNOWN INDICATION
     Dosage: 95 MILLIGRAM, 1-0-1-0
  7. FUROSEMID                          /00032601/ [Concomitant]
     Active Substance: FUROSEMIDE
     Dosage: 125 MILLIGRAM, 2-1-0-0
  8. METAMIZOL                          /06276701/ [Concomitant]
     Active Substance: METAMIZOLE
     Dosage: NK MG, 40-40-40-40, TROPFEN
  9. VIDISIC [Concomitant]
     Dosage: NK MG, 1-1-1-0
     Route: 047
  10. LANTUS [Concomitant]
     Active Substance: INSULIN GLARGINE
     Dosage: 50 INTERNATIONAL UNIT, 0-0-0-1
  11. XIPAMID [Concomitant]
     Active Substance: XIPAMIDE
     Dosage: 20 MILLIGRAM, 2-1-0-0
  12. ATROVENT [Concomitant]
     Active Substance: IPRATROPIUM BROMIDE
     Dosage: NK MG, 20-20-20-20
     Route: 055
  13. PRAMIPEXOL                         /01356401/ [Concomitant]
     Active Substance: PRAMIPEXOLE
     Dosage: 0.35 MILLIGRAM, 0-0-0.5-0
  14. FENTANYL. [Concomitant]
     Active Substance: FENTANYL
     Dosage: 50 MICROGRAM, WECHSEL ALLE 3 D
  15. TAMSULOSIN [Concomitant]
     Active Substance: TAMSULOSIN
     Dosage: 0.4 MILLIGRAM, 0-0-1-0
  16. GABAPENTIN. [Concomitant]
     Active Substance: GABAPENTIN
     Dosage: 300 MILLIGRAM, 1-1-1-0
  17. MOVICOL [Concomitant]
     Active Substance: POLYETHYLENE GLYCOL 3350\POTASSIUM CHLORIDE\SODIUM BICARBONATE\SODIUM CHLORIDE
     Dosage: UNK, QD
  18. KALIUM                             /00031401/ [Concomitant]
     Active Substance: POTASSIUM CHLORIDE
     Dosage: UNK, BID

REACTIONS (2)
  - Dyspnoea [Unknown]
  - Product prescribing error [Unknown]

NARRATIVE: CASE EVENT DATE: 20170113
